FAERS Safety Report 7454913-7 (Version None)
Quarter: 2011Q2

REPORT INFORMATION
  Report Type: 
  Country: None (occurrence: None)
  Receive Date: 20110503
  Receipt Date: 20100527
  Transmission Date: 20111010
  Serious: No
  Sender: FDA-Public Use
  Company Number: US-BAYER-201024633NA

PATIENT
  Sex: Female

DRUGS (2)
  1. YAZ [Suspect]
     Indication: ABDOMINAL PAIN LOWER
  2. YAZ [Suspect]
     Indication: MENORRHAGIA

REACTIONS (1)
  - MUSCLE TIGHTNESS [None]
